FAERS Safety Report 4720987-7 (Version None)
Quarter: 2005Q3

REPORT INFORMATION
  Report Type: 
  Country: None (occurrence: None)
  Receive Date: 20050720
  Receipt Date: 20050707
  Transmission Date: 20060218
  Serious: Yes (Other)
  Sender: FDA-Public Use
  Company Number: 2005096734

PATIENT
  Age: 54 Year
  Sex: Female

DRUGS (4)
  1. AROMASIN [Suspect]
     Indication: BREAST CANCER FEMALE
     Dosage: (1 TABLET,DAILY),ORAL
     Route: 048
     Dates: start: 20041220, end: 20050101
  2. LORZAAR (LOSARTAN POTASSIUM) [Concomitant]
  3. DIBLOCIN (DOXAZOSIN MESILATE) [Concomitant]
  4. BISOPROLOL FUMARATE [Concomitant]

REACTIONS (4)
  - BLOOD BILIRUBIN INCREASED [None]
  - HEPATOTOXICITY [None]
  - LYMPHADENOPATHY [None]
  - TRANSAMINASES INCREASED [None]
